FAERS Safety Report 20665444 (Version 2)
Quarter: 2022Q2

REPORT INFORMATION
  Report Type: Report from Study
  Country: CA (occurrence: CA)
  Receive Date: 20220402
  Receipt Date: 20220506
  Transmission Date: 20220721
  Serious: Yes (Other)
  Sender: FDA-Public Use
  Company Number: CA-ABBVIE-22K-028-4341820-00

PATIENT
  Age: 57 Year
  Sex: Female

DRUGS (1)
  1. HUMIRA [Suspect]
     Active Substance: ADALIMUMAB
     Indication: Crohn^s disease
     Route: 058
     Dates: start: 20210423

REACTIONS (10)
  - Haemorrhage [Unknown]
  - Defaecation urgency [Unknown]
  - Frequent bowel movements [Unknown]
  - Stress [Unknown]
  - Blood iron decreased [Unknown]
  - Crohn^s disease [Unknown]
  - Injection site pain [Unknown]
  - Injection site erythema [Unknown]
  - Dyspnoea exertional [Unknown]
  - Inflammatory bowel disease [Not Recovered/Not Resolved]

NARRATIVE: CASE EVENT DATE: 20220201
